FAERS Safety Report 10287907 (Version 3)
Quarter: 2014Q3

REPORT INFORMATION
  Report Type: Spontaneous
  Country: BE (occurrence: BE)
  Receive Date: 20140709
  Receipt Date: 20140905
  Transmission Date: 20150326
  Serious: Yes (Other)
  Sender: FDA-Public Use
  Company Number: BE-WATSON-2014-15159

PATIENT
  Sex: Female

DRUGS (1)
  1. FIBRISTAL [Suspect]
     Active Substance: ULIPRISTAL
     Indication: ADENOMYOSIS
     Dosage: 5 MG, DAILY
     Route: 065

REACTIONS (3)
  - Off label use [Unknown]
  - Urinary retention [Recovered/Resolved]
  - Dry mouth [Recovered/Resolved]
